FAERS Safety Report 6308788-X (Version None)
Quarter: 2009Q3

REPORT INFORMATION
  Report Type: 
  Country: None (occurrence: None)
  Receive Date: 20090813
  Receipt Date: 20080725
  Transmission Date: 20100115
  Serious: No
  Sender: FDA-Public Use
  Company Number: US-ALLERGAN-0809212US

PATIENT
  Sex: Female

DRUGS (2)
  1. COMBIGAN [Suspect]
     Indication: GLAUCOMA
     Dosage: UNK, UNK
  2. TOPROL-XL [Concomitant]
     Indication: MITRAL VALVE PROLAPSE

REACTIONS (3)
  - LETHARGY [None]
  - SOMNOLENCE [None]
  - URTICARIA [None]
